FAERS Safety Report 16290144 (Version 1)
Quarter: 2019Q2

REPORT INFORMATION
  Report Type: Spontaneous
  Country: US (occurrence: US)
  Receive Date: 20190402
  Receipt Date: 20190402
  Transmission Date: 20190711
  Serious: Yes (Hospitalization)
  Sender: FDA-Public Use
  Company Number: None

PATIENT
  Age: 70 Year
  Sex: Male
  Weight: 80 kg

DRUGS (2)
  1. CEFAZOLIN [Suspect]
     Active Substance: CEFAZOLIN
     Indication: SOFT TISSUE INFECTION
     Route: 042
     Dates: start: 20190201, end: 20190203
  2. CEFAZOLIN [Suspect]
     Active Substance: CEFAZOLIN
     Indication: SKIN INFECTION
     Route: 042
     Dates: start: 20190201, end: 20190203

REACTIONS (1)
  - Rash pruritic [None]

NARRATIVE: CASE EVENT DATE: 20190203
